FAERS Safety Report 6122437-5 (Version None)
Quarter: 2009Q1

REPORT INFORMATION
  Report Type: 
  Country: None (occurrence: None)
  Receive Date: 20090316
  Receipt Date: 20090316
  Transmission Date: 20090719
  Serious: No
  Sender: FDA-Public Use
  Company Number: None

PATIENT
  Age: 81 Year
  Sex: Female
  Weight: 63.5036 kg

DRUGS (4)
  1. LEVAQUIN [Suspect]
     Indication: CYSTITIS
     Dosage: 1 TABLET TWICE DAILY
     Dates: start: 20080830, end: 20080908
  2. LEVAQUIN [Suspect]
     Indication: SINUSITIS
     Dosage: 1 TABLET TWICE DAILY
     Dates: start: 20080830, end: 20080908
  3. LEVAQUIN [Suspect]
     Indication: CYSTITIS
     Dosage: 1 TABLET TWICE DAILY
     Dates: start: 20081130, end: 20081130
  4. LEVAQUIN [Suspect]
     Indication: SINUSITIS
     Dosage: 1 TABLET TWICE DAILY
     Dates: start: 20081130, end: 20081130

REACTIONS (2)
  - PAIN IN EXTREMITY [None]
  - SINUSITIS [None]
